FAERS Safety Report 7225753-9 (Version None)
Quarter: 2011Q1

REPORT INFORMATION
  Report Type: 
  Country: None (occurrence: None)
  Receive Date: 20110113
  Receipt Date: 20110110
  Transmission Date: 20110831
  Serious: Yes (Other)
  Sender: FDA-Public Use
  Company Number: US-ROXANE LABORATORIES, INC.-2011-RO-00048RO

PATIENT
  Age: 10 Year
  Sex: Female

DRUGS (12)
  1. PREDNISONE [Suspect]
  2. ANAKINRA [Suspect]
     Indication: JUVENILE ARTHRITIS
  3. METHADONE HCL [Concomitant]
  4. INFLIXIMAB [Suspect]
  5. LEFLUNOMIDE [Suspect]
  6. THALIDOMIDE [Suspect]
  7. ETANERCEPT [Suspect]
     Indication: JUVENILE ARTHRITIS
  8. ADALIMUMAB [Suspect]
  9. RITUXIMAB [Suspect]
  10. NAPROXEN [Concomitant]
  11. METHOTREXATE [Suspect]
  12. CYCLOPHOSPHAMIDE [Suspect]
     Route: 042

REACTIONS (3)
  - HODGKIN'S DISEASE [None]
  - DRUG INEFFECTIVE [None]
  - ANAPHYLACTIC REACTION [None]
